FAERS Safety Report 14543757 (Version 9)
Quarter: 2019Q2

REPORT INFORMATION
  Report Type: Spontaneous
  Country: US (occurrence: US)
  Receive Date: 20180216
  Receipt Date: 20190520
  Transmission Date: 20190711
  Serious: Yes (Hospitalization)
  Sender: FDA-Public Use
  Company Number: US-ACTELION-A-US2018-167813

PATIENT
  Age: 38 Year
  Sex: Female
  Weight: 165.53 kg

DRUGS (4)
  1. OPSUMIT [Suspect]
     Active Substance: MACITENTAN
     Indication: PULMONARY ARTERIAL HYPERTENSION
     Dosage: 10 MG, QD
     Route: 048
  2. REMODULIN [Concomitant]
     Active Substance: TREPROSTINIL
     Dosage: UNK
  3. SILDENAFIL CITRATE. [Concomitant]
     Active Substance: SILDENAFIL CITRATE
  4. WARFARIN [Concomitant]
     Active Substance: WARFARIN

REACTIONS (11)
  - Nasopharyngitis [Unknown]
  - Fluid retention [Unknown]
  - Dyspnoea [Unknown]
  - Syncope [Unknown]
  - Pyrexia [Unknown]
  - Device issue [Unknown]
  - Oedema [Unknown]
  - Weight increased [Unknown]
  - Respiratory disorder [Unknown]
  - Fluid overload [Unknown]
  - Fatigue [Unknown]

NARRATIVE: CASE EVENT DATE: 201803
